FAERS Safety Report 14821936 (Version 1)
Quarter: 2018Q2

REPORT INFORMATION
  Report Type: Spontaneous
  Country: CM (occurrence: CM)
  Receive Date: 20180427
  Receipt Date: 20180427
  Transmission Date: 20180711
  Serious: Yes (Other)
  Sender: FDA-Public Use
  Company Number: CM-PFIZER INC-2018168203

PATIENT
  Age: 30 Year
  Sex: Female

DRUGS (3)
  1. MISOPROSTOL. [Suspect]
     Active Substance: MISOPROSTOL
     Indication: UTERINE ATONY
  2. MISOPROSTOL. [Suspect]
     Active Substance: MISOPROSTOL
     Indication: POSTPARTUM HAEMORRHAGE
     Dosage: 600 UG, UNK
     Route: 060
  3. OXYTOCIN. [Concomitant]
     Active Substance: OXYTOCIN
     Indication: LABOUR INDUCTION
     Dosage: 10 IU, UNK

REACTIONS (2)
  - Chills [Recovered/Resolved]
  - Hyperpyrexia [Recovered/Resolved]
